FAERS Safety Report 4621897-6 (Version None)
Quarter: 2005Q1

REPORT INFORMATION
  Report Type: 
  Country: None (occurrence: None)
  Receive Date: 20050329
  Receipt Date: 20050324
  Transmission Date: 20050727
  Serious: Yes (Other)
  Sender: FDA-Public Use
  Company Number: DO1200401403

PATIENT
  Age: 62 Year
  Sex: Male
  Weight: 90 kg

DRUGS (7)
  1. FONDAPARINUX SODIUM [Suspect]
     Indication: MYOCARDIAL INFARCTION
     Dosage: 2.5MG PER DAY
     Route: 058
     Dates: start: 20040415
  2. ASPIRIN [Concomitant]
  3. CLOPIDOGREL [Concomitant]
  4. NITRATES [Concomitant]
  5. CALCIUM CHANNEL BLOCKER [Concomitant]
  6. STATINS [Concomitant]
  7. BETA BLOCKER [Concomitant]

REACTIONS (3)
  - CATHETER RELATED COMPLICATION [None]
  - PROCEDURAL COMPLICATION [None]
  - THROMBOSIS [None]
